FAERS Safety Report 5782961-1 (Version None)
Quarter: 2008Q2

REPORT INFORMATION
  Report Type: 
  Country: None (occurrence: None)
  Receive Date: 20080624
  Receipt Date: 20080617
  Transmission Date: 20081010
  Serious: Yes (Other)
  Sender: FDA-Public Use
  Company Number: PHHO2006ES13154

PATIENT
  Sex: Female
  Weight: 58 kg

DRUGS (2)
  1. ICL670A ICL+DISTAB [Suspect]
     Indication: BLOOD IRON INCREASED
     Dosage: 20 MG/KG, QD
     Route: 048
     Dates: start: 20060517, end: 20060809
  2. MICROGYNON [Concomitant]
     Indication: AMENORRHOEA
     Dosage: UNK, UNK
     Dates: start: 20040101

REACTIONS (6)
  - ABDOMINAL PAIN [None]
  - ASCITES [None]
  - HEPATIC ENZYME ABNORMAL [None]
  - HEPATITIS [None]
  - HEPATOMEGALY [None]
  - HEPATOTOXICITY [None]
